FAERS Safety Report 19246103 (Version 3)
Quarter: 2021Q2

REPORT INFORMATION
  Report Type: Spontaneous
  Country: FR (occurrence: FR)
  Receive Date: 20210512
  Receipt Date: 20210524
  Transmission Date: 20210717
  Serious: Yes (Death, Life-Threatening)
  Sender: FDA-Public Use
  Company Number: FR-PFIZER INC-2021510529

PATIENT
  Age: 77 Year
  Sex: Male
  Weight: 102 kg

DRUGS (13)
  1. JOSIR [Concomitant]
     Active Substance: TAMSULOSIN
     Dosage: UNK, QD
     Route: 048
  2. ESIDREX [Suspect]
     Active Substance: HYDROCHLOROTHIAZIDE
     Dosage: 0.5 DF, 1X/DAY
     Route: 065
     Dates: end: 20210402
  3. ZYLORIC [Suspect]
     Active Substance: ALLOPURINOL
     Dosage: 200 MILLIGRAM, QD
     Route: 065
     Dates: end: 20210402
  4. AVODART [Concomitant]
     Active Substance: DUTASTERIDE
     Dosage: UNK UNK, QD
     Route: 048
  5. PREVISCAN [FLUINDIONE] [Concomitant]
     Active Substance: FLUINDIONE
     Dosage: UNK UNK, QD
     Route: 048
  6. HUMALOG [Concomitant]
     Active Substance: INSULIN LISPRO
     Dosage: UNK
     Route: 058
  7. IMOVANE [Concomitant]
     Active Substance: ZOPICLONE
     Dosage: UNK UNK, QD
     Route: 048
  8. CODOLIPRANE [Concomitant]
     Active Substance: ACETAMINOPHEN\CODEINE PHOSPHATE
     Dosage: UNK UNK, QD
     Route: 048
  9. DIFFU K [Concomitant]
     Active Substance: POTASSIUM CHLORIDE
     Dosage: UNK UNK, QD
     Route: 048
  10. TRIATEC [CAFFEINE CITRATE;CODEINE PHOSPHATE;PARACETAMOL] [Concomitant]
     Dosage: UNK UNK, QD
     Route: 048
  11. AMLOR [Concomitant]
     Active Substance: AMLODIPINE BESYLATE
     Dosage: UNK UNK, QD
     Route: 048
  12. EUPANTOL [Suspect]
     Active Substance: PANTOPRAZOLE SODIUM
     Dosage: 20 MILLIGRAM, QD
     Route: 065
     Dates: end: 20210402
  13. LASILIX [FUROSEMIDE SODIUM] [Concomitant]
     Active Substance: FUROSEMIDE SODIUM
     Dosage: 540 MILLIGRAM, QD
     Route: 048

REACTIONS (2)
  - Thrombocytopenia [Fatal]
  - Cardiac failure chronic [Fatal]

NARRATIVE: CASE EVENT DATE: 20210328
